FAERS Safety Report 9098416 (Version 3)
Quarter: 2014Q4

REPORT INFORMATION
  Report Type: Spontaneous
  Country: US (occurrence: US)
  Receive Date: 20130213
  Receipt Date: 20141017
  Transmission Date: 20150529
  Serious: Yes (Other)
  Sender: FDA-Public Use
  Company Number: US-ASTRAZENECA-2013SE03559

PATIENT
  Age: 58 Year
  Sex: Female

DRUGS (1)
  1. SYMBICORT [Suspect]
     Active Substance: BUDESONIDE\FORMOTEROL FUMARATE DIHYDRATE
     Indication: CHRONIC OBSTRUCTIVE PULMONARY DISEASE
     Dosage: 160/4.5 UG, UNKNOWN
     Route: 055

REACTIONS (7)
  - Dyspnoea exertional [Unknown]
  - Malaise [Unknown]
  - Bursitis [Unknown]
  - Dyspnoea [Unknown]
  - Drug dose omission [Unknown]
  - Asthenia [Unknown]
  - Intentional product misuse [Unknown]

NARRATIVE: CASE EVENT DATE: 2013
